FAERS Safety Report 6135680-6 (Version None)
Quarter: 2009Q1

REPORT INFORMATION
  Report Type: 
  Country: None (occurrence: None)
  Receive Date: 20090327
  Receipt Date: 20090316
  Transmission Date: 20090719
  Serious: Yes (Hospitalization)
  Sender: FDA-Public Use
  Company Number: TR-ELI_LILLY_AND_COMPANY-TR200903006491

PATIENT
  Age: 64 Year
  Sex: Female

DRUGS (3)
  1. HUMALOG MIX 50/50 [Suspect]
     Indication: TYPE 2 DIABETES MELLITUS
     Dosage: 96 U, DAILY (1/D)
     Route: 058
     Dates: start: 20040101
  2. DIGOXIN [Concomitant]
     Indication: CARDIAC DISORDER
  3. GLUKOFEN [Concomitant]
     Indication: DIABETES MELLITUS

REACTIONS (3)
  - HOSPITALISATION [None]
  - HYPOAESTHESIA [None]
  - TREMOR [None]
